FAERS Safety Report 7085446-8 (Version None)
Quarter: 2010Q4

REPORT INFORMATION
  Report Type: 
  Country: None (occurrence: None)
  Receive Date: 20101105
  Receipt Date: 20101102
  Transmission Date: 20110411
  Serious: Yes (Other)
  Sender: FDA-Public Use
  Company Number: ES-PFIZER INC-2010139689

PATIENT
  Sex: Male

DRUGS (2)
  1. TRANKIMAZIN [Suspect]
     Dosage: 0.25 MG, UNK
     Route: 064
     Dates: start: 20020101, end: 20020101
  2. CAPTOPRIL [Suspect]
     Dosage: UNK
     Route: 064
     Dates: start: 20020101, end: 20020101

REACTIONS (4)
  - ALOPECIA [None]
  - DRUG EXPOSURE DURING PREGNANCY [None]
  - MATERNAL DRUGS AFFECTING FOETUS [None]
  - MENTAL RETARDATION [None]
